FAERS Safety Report 9377331 (Version 2)
Quarter: 2013Q3

REPORT INFORMATION
  Report Type: Spontaneous
  Country: US (occurrence: US)
  Receive Date: 20130701
  Receipt Date: 20130801
  Transmission Date: 20140515
  Serious: Yes (Other)
  Sender: FDA-Public Use
  Company Number: PHEH2013US013887

PATIENT
  Age: 67 Year
  Sex: Female
  Weight: 96 kg

DRUGS (6)
  1. VALSARTAN + HCT [Suspect]
     Indication: HYPERTENSION
     Dosage: 1 DF (320 MG VALS/12.5 MG HCTZ), QD
     Route: 048
     Dates: start: 2012
  2. PREMARIN [Concomitant]
     Indication: HORMONE REPLACEMENT THERAPY
     Dosage: UNK UKN, UNK
  3. BYSTOLIC [Concomitant]
     Indication: HYPERTENSION
     Dosage: 10 MG, QD
     Route: 048
  4. AMLODIPINE [Concomitant]
     Indication: HYPERTENSION
     Dosage: UNK UKN, UNK
  5. DALIRESP [Concomitant]
     Indication: CHRONIC OBSTRUCTIVE PULMONARY DISEASE
     Dosage: 500 MG, UNK
  6. MIRTAZAPINE [Concomitant]
     Indication: SLEEP DISORDER
     Dosage: 45 MG, QHS
     Route: 048

REACTIONS (7)
  - Nerve injury [Unknown]
  - Intervertebral disc injury [Unknown]
  - Skeletal injury [Unknown]
  - Blood pressure increased [Unknown]
  - Blood pressure decreased [Unknown]
  - Loss of consciousness [Unknown]
  - Drug ineffective [Unknown]
